FAERS Safety Report 8388290-4 (Version None)
Quarter: 2012Q2

REPORT INFORMATION
  Report Type: 
  Country: None (occurrence: None)
  Receive Date: 20120525
  Receipt Date: 20110712
  Transmission Date: 20120825
  Serious: No
  Sender: FDA-Public Use
  Company Number: US-BAUSCH-2011BL004611

PATIENT
  Age: 48 Year
  Sex: Male

DRUGS (8)
  1. GANCICLOVIR [Concomitant]
     Indication: CYTOMEGALOVIRUS CHORIORETINITIS
     Route: 042
  2. VALGANCICLOVIR [Concomitant]
  3. FOSCARNET [Concomitant]
     Indication: CYTOMEGALOVIRUS CHORIORETINITIS
     Route: 042
  4. CIDOFOVIR [Concomitant]
     Indication: CYTOMEGALOVIRUS CHORIORETINITIS
     Route: 042
  5. FLUOCINOLONE ACETONIDE [Suspect]
     Indication: CYSTOID MACULAR OEDEMA
     Route: 031
     Dates: start: 20110301
  6. FLUOCINOLONE ACETONIDE [Suspect]
     Indication: UVEITIS
     Route: 031
     Dates: start: 20110301
  7. TRIAMCINOLONE ACETONIDE [Concomitant]
     Indication: UVEITIS
     Route: 031
  8. PREDNISONE TAB [Concomitant]
     Indication: UVEITIS
     Route: 048

REACTIONS (1)
  - DRUG EFFECT DECREASED [None]
